FAERS Safety Report 9631868 (Version 1)
Quarter: 2013Q4

REPORT INFORMATION
  Report Type: Spontaneous
  Country: US (occurrence: None)
  Receive Date: 20131017
  Receipt Date: 20131017
  Transmission Date: 20140711
  Serious: Yes (Other)
  Sender: FDA-Public Use
  Company Number: None

PATIENT
  Age: 49 Year
  Sex: Female
  Weight: 77.11 kg

DRUGS (1)
  1. CIPRO [Suspect]
     Indication: CYSTITIS
     Route: 048
     Dates: start: 20120919, end: 20120929

REACTIONS (7)
  - Abdominal pain [None]
  - Anal pruritus [None]
  - Faecal incontinence [None]
  - Rectal haemorrhage [None]
  - Rash [None]
  - Dyspnoea [None]
  - Fungal infection [None]
